FAERS Safety Report 4887830-7 (Version None)
Quarter: 2006Q1

REPORT INFORMATION
  Report Type: 
  Country: None (occurrence: None)
  Receive Date: 20060123
  Receipt Date: 20050218
  Transmission Date: 20060701
  Serious: Yes (Hospitalization)
  Sender: FDA-Public Use
  Company Number: US-MERCK-0502USA02853

PATIENT
  Age: 40 Year
  Sex: Female
  Weight: 76 kg

DRUGS (12)
  1. VIOXX [Suspect]
     Indication: ARTHRALGIA
     Route: 048
     Dates: start: 20030101, end: 20050101
  2. [THERAPY UNSPECIFIED] [Concomitant]
     Route: 065
  3. [THERAPY UNSPECIFIED] [Concomitant]
     Route: 065
  4. VERAPAMIL [Concomitant]
     Route: 065
  5. PROTONIX [Concomitant]
     Route: 065
  6. VICODIN [Concomitant]
     Route: 065
  7. PLAVIX [Concomitant]
     Route: 065
  8. COUMADIN [Concomitant]
     Route: 065
  9. VALIUM [Concomitant]
     Route: 065
  10. ATIVAN [Concomitant]
     Route: 065
  11. [THERAPY UNSPECIFIED] [Concomitant]
     Route: 065
  12. NORVASC [Concomitant]
     Route: 065

REACTIONS (3)
  - CEREBROVASCULAR ACCIDENT [None]
  - COMA [None]
  - MYOCARDIAL INFARCTION [None]
